FAERS Safety Report 4660248-8 (Version None)
Quarter: 2005Q2

REPORT INFORMATION
  Report Type: 
  Country: None (occurrence: None)
  Receive Date: 20050427
  Receipt Date: 20050105
  Transmission Date: 20051028
  Serious: No
  Sender: FDA-Public Use
  Company Number: 211509

PATIENT
  Age: 51 Year
  Sex: Female

DRUGS (15)
  1. XOLAIR [Suspect]
     Indication: ASTHMA
     Dosage: 300 MG, 1/MONTH, SUBCUTANEOUS
     Route: 058
     Dates: start: 20041021, end: 20050104
  2. ALLEGRA [Concomitant]
  3. ADVAIR (FLUTICASONE PROPIONATE, SALMETEROL XINAFOATE) [Concomitant]
  4. AEROBID [Concomitant]
  5. ALBUTEROL (ALBUTEROL, ALBUTEROL SULFATE) [Concomitant]
  6. PROVENTIL (ALBUTEROL SULFATE, ALBUTEROL) [Concomitant]
  7. MAXAIR [Concomitant]
  8. EFFEXOR [Concomitant]
  9. SKELAXIN [Concomitant]
  10. LIPITOR [Concomitant]
  11. NORVASC [Concomitant]
  12. ENALAPRIL MALEATE [Concomitant]
  13. XANAX [Concomitant]
  14. HYDROMORPHONE (HYDROMORPHONE HYDROCHLORIDE) [Concomitant]
  15. DILAUDID [Concomitant]

REACTIONS (2)
  - MUSCULAR WEAKNESS [None]
  - MYALGIA [None]
